FAERS Safety Report 22182832 (Version 1)
Quarter: 2023Q2

REPORT INFORMATION
  Report Type: Spontaneous
  Country: US (occurrence: US)
  Receive Date: 20230406
  Receipt Date: 20230406
  Transmission Date: 20230721
  Serious: Yes (Other)
  Sender: FDA-Public Use
  Company Number: US-BRISTOL-MYERS SQUIBB COMPANY-2023-048555

PATIENT
  Age: 72 Year
  Sex: Female
  Weight: 58.97 kg

DRUGS (1)
  1. ELIQUIS [Suspect]
     Active Substance: APIXABAN
     Indication: Cerebrovascular accident prophylaxis
     Dosage: SHE WAS SUPPOSED TO GET 2.5 MG ELIQUIS BUT WAS RECEIVING 5 MG TABLETS BUT SHE WOULD CUT THE 5 MG IN
     Route: 048
     Dates: end: 202303

REACTIONS (3)
  - Haemorrhage [Unknown]
  - Contusion [Unknown]
  - Treatment noncompliance [Unknown]
